FAERS Safety Report 17345633 (Version 2)
Quarter: 2020Q1

REPORT INFORMATION
  Report Type: Report from Study
  Country: JP (occurrence: JP)
  Receive Date: 20200129
  Receipt Date: 20200205
  Transmission Date: 20200409
  Serious: Yes (Hospitalization, Other)
  Sender: FDA-Public Use
  Company Number: JP-TEVA-2019-JP-1160920

PATIENT
  Age: 71 Year
  Sex: Female
  Weight: 60 kg

DRUGS (18)
  1. MEROPENEM. [Concomitant]
     Active Substance: MEROPENEM
     Route: 065
  2. LYRICA [Concomitant]
     Active Substance: PREGABALIN
  3. SOLU-MEDROL [Concomitant]
     Active Substance: METHYLPREDNISOLONE SODIUM SUCCINATE
     Route: 065
  4. NEUPRO [Concomitant]
     Active Substance: ROTIGOTINE
     Dates: start: 20190731
  5. ATORVASTATIN CALCIUM. [Concomitant]
     Active Substance: ATORVASTATIN CALCIUM
  6. CARBIDOPA MONOHYDRATE W/LEVODOPA [Concomitant]
     Active Substance: CARBIDOPA\LEVODOPA
  7. RASAGILINE MESILATE [Suspect]
     Active Substance: RASAGILINE MESYLATE
     Indication: PARKINSON^S DISEASE
     Dosage: 1 MILLIGRAM DAILY;
     Route: 065
     Dates: start: 20190605, end: 20191119
  8. ENTACAPONE. [Concomitant]
     Active Substance: ENTACAPONE
     Dates: end: 20191119
  9. RECALBON [Concomitant]
  10. LEVODOPA [Concomitant]
     Active Substance: LEVODOPA
  11. CALONAL [Concomitant]
     Active Substance: ACETAMINOPHEN
  12. MAGMITT [Concomitant]
     Active Substance: MAGNESIUM OXIDE
  13. DIART [Concomitant]
     Active Substance: AZOSEMIDE
  14. VANCOMYCIN [Concomitant]
     Active Substance: VANCOMYCIN
     Route: 065
  15. CABASER [Concomitant]
     Active Substance: CABERGOLINE
     Dates: end: 20190730
  16. XARELTO [Concomitant]
     Active Substance: RIVAROXABAN
  17. RABEPRAZOLE SODIUM. [Concomitant]
     Active Substance: RABEPRAZOLE SODIUM
  18. VERAPAMIL HYDROCHLORIDE. [Concomitant]
     Active Substance: VERAPAMIL HYDROCHLORIDE

REACTIONS (8)
  - Inflammation [Recovered/Resolved]
  - Hepatic function abnormal [Recovered/Resolved]
  - Cardiac failure congestive [Recovered/Resolved]
  - Blood pressure fluctuation [Recovered/Resolved]
  - Hepatic congestion [Recovered/Resolved]
  - Tachycardia [Recovered/Resolved]
  - Acute kidney injury [Recovered/Resolved]
  - Cardiomyopathy [Recovered/Resolved]

NARRATIVE: CASE EVENT DATE: 20191031
